FAERS Safety Report 11228621 (Version 5)
Quarter: 2019Q1

REPORT INFORMATION
  Report Type: Spontaneous
  Country: US (occurrence: US)
  Receive Date: 20150630
  Receipt Date: 20190128
  Transmission Date: 20190417
  Serious: Yes (Hospitalization, Other)
  Sender: FDA-Public Use
  Company Number: US-DSJP-DSU-2015-120134

PATIENT

DRUGS (2)
  1. BENICAR [Suspect]
     Active Substance: OLMESARTAN MEDOXOMIL
     Dosage: 40 MG, QD
     Route: 048
     Dates: start: 20080701
  2. BENICAR [Suspect]
     Active Substance: OLMESARTAN MEDOXOMIL
     Indication: HYPERTENSION
     Dosage: 20 MG, QD
     Route: 048
     Dates: end: 201402

REACTIONS (15)
  - Sprue-like enteropathy [Recovering/Resolving]
  - Hepatic steatosis [Unknown]
  - Large intestinal ulcer [Unknown]
  - Gastrooesophageal reflux disease [Recovering/Resolving]
  - Liver function test increased [Recovering/Resolving]
  - Anxiety [Unknown]
  - Hiatus hernia [Not Recovered/Not Resolved]
  - Impaired gastric emptying [Unknown]
  - Acute kidney injury [Unknown]
  - Depression [Unknown]
  - Irritable bowel syndrome [Unknown]
  - Cholecystitis chronic [Recovered/Resolved]
  - Diverticulum intestinal [Not Recovered/Not Resolved]
  - Large intestine polyp [Recovering/Resolving]
  - Tremor [Unknown]

NARRATIVE: CASE EVENT DATE: 20030714
